FAERS Safety Report 6307756-1 (Version None)
Quarter: 2009Q3

REPORT INFORMATION
  Report Type: 
  Country: None (occurrence: None)
  Receive Date: 20090811
  Receipt Date: 20090729
  Transmission Date: 20100115
  Serious: Yes (Hospitalization)
  Sender: FDA-Public Use
  Company Number: 230544K09USA

PATIENT
  Age: 70 Year
  Sex: Female
  Weight: 104 kg

DRUGS (3)
  1. REBIF [Suspect]
     Indication: MULTIPLE SCLEROSIS
     Dosage: 44 MCG, 3 IN 1 WEEKS, SUBCUTANEOUS; 44 MCG, 3 IN 1 W3EEKS, SUBCUTANEOUS
     Route: 058
     Dates: start: 20070910, end: 20090114
  2. REBIF [Suspect]
     Indication: MULTIPLE SCLEROSIS
     Dosage: 44 MCG, 3 IN 1 WEEKS, SUBCUTANEOUS; 44 MCG, 3 IN 1 W3EEKS, SUBCUTANEOUS
     Route: 058
     Dates: start: 20090101
  3. FUROSEMIDE            (FUROSEMIDE /00032601/) [Concomitant]

REACTIONS (1)
  - SKIN ULCER [None]
